FAERS Safety Report 8976465 (Version 1)
Quarter: 2012Q4

REPORT INFORMATION
  Report Type: 
  Country: JP (occurrence: JP)
  Receive Date: 20121220
  Receipt Date: 20121220
  Transmission Date: 20130627
  Serious: Yes (Hospitalization)
  Sender: FDA-Public Use
  Company Number: JP-BAYER-2011-046892

PATIENT
  Age: 78 Year
  Sex: Male

DRUGS (5)
  1. NEXAVAR [Suspect]
     Indication: CARCINOMA HEPATOCELLULAR
     Dosage: 200 mg, QD
     Route: 048
     Dates: start: 20110107
  2. NEXAVAR [Suspect]
     Indication: CARCINOMA HEPATOCELLULAR
     Dosage: 800 mg daily
     Route: 048
     Dates: start: 20110109
  3. NEXAVAR [Suspect]
     Indication: CARCINOMA HEPATOCELLULAR
     Dosage: 400 mg, QOD
     Route: 048
     Dates: start: 201102, end: 201112
  4. ANTIBIOTICS [Concomitant]
     Indication: LIVER ABSCESS
  5. BCAA [Concomitant]
     Indication: CHRONIC HEPATITIS C
     Route: 048

REACTIONS (4)
  - Jaundice cholestatic [Recovered/Resolved]
  - Cholangitis [Recovered/Resolved]
  - Palmar-plantar erythrodysaesthesia syndrome [Recovered/Resolved]
  - Blood bilirubin increased [Unknown]
